FAERS Safety Report 10535288 (Version 1)
Quarter: 2014Q4

REPORT INFORMATION
  Report Type: Spontaneous
  Country: CH (occurrence: CH)
  Receive Date: 20141022
  Receipt Date: 20141022
  Transmission Date: 20150529
  Serious: Yes (Other)
  Sender: FDA-Public Use
  Company Number: CH-GLAXOSMITHKLINE-CH2014007188

PATIENT

DRUGS (2)
  1. TIVICAY [Suspect]
     Active Substance: DOLUTEGRAVIR SODIUM
     Indication: ASYMPTOMATIC HIV INFECTION
     Route: 048
     Dates: start: 20140908, end: 20140913
  2. KIVEXA [Suspect]
     Active Substance: ABACAVIR SULFATE\LAMIVUDINE
     Indication: ASYMPTOMATIC HIV INFECTION
     Route: 048
     Dates: start: 20140908, end: 20140913

REACTIONS (2)
  - Rash [Recovered/Resolved with Sequelae]
  - Angioedema [Recovering/Resolving]

NARRATIVE: CASE EVENT DATE: 20140912
